FAERS Safety Report 8408967 (Version 3)
Quarter: 2014Q3

REPORT INFORMATION
  Report Type: Spontaneous
  Country: GB (occurrence: GB)
  Receive Date: 20120216
  Receipt Date: 20140728
  Transmission Date: 20150326
  Serious: Yes (Congenital Anomaly)
  Sender: FDA-Public Use
  Company Number: GB-ROCHE-1035635

PATIENT

DRUGS (1)
  1. ISOTRETINOIN [Suspect]
     Active Substance: ISOTRETINOIN
     Indication: PRODUCT USED FOR UNKNOWN INDICATION
     Route: 064

REACTIONS (5)
  - Congenital cardiovascular anomaly [Unknown]
  - Dandy-Walker syndrome [Unknown]
  - Maternal exposure timing unspecified [Unknown]
  - Congenital central nervous system anomaly [Unknown]
  - Ventricular septal defect [Unknown]
